FAERS Safety Report 5975758-0 (Version None)
Quarter: 2008Q4

REPORT INFORMATION
  Report Type: 
  Country: None (occurrence: None)
  Receive Date: 20081202
  Receipt Date: 20081027
  Transmission Date: 20090506
  Serious: Yes (Hospitalization)
  Sender: FDA-Public Use
  Company Number: AU-MERCK-0810AUS00147

PATIENT
  Age: 43 Year
  Sex: Female
  Weight: 61 kg

DRUGS (8)
  1. APREPITANT [Suspect]
     Indication: PROPHYLAXIS OF NAUSEA AND VOMITING
     Route: 048
     Dates: start: 20080116
  2. APREPITANT [Suspect]
     Route: 048
     Dates: start: 20080201
  3. APREPITANT [Suspect]
     Route: 048
     Dates: start: 20080101
  4. CYCLOPHOSPHAMIDE [Concomitant]
     Indication: BREAST NEOPLASM
     Route: 065
  5. DEXAMETHASONE [Concomitant]
     Indication: PROPHYLAXIS OF NAUSEA AND VOMITING
     Route: 065
     Dates: start: 20080116
  6. EPIRUBICIN HYDROCHLORIDE [Concomitant]
     Indication: BREAST NEOPLASM
     Route: 042
     Dates: start: 20080116
  7. FLUOROURACIL [Concomitant]
     Indication: BREAST NEOPLASM
     Route: 051
  8. ONDANSETRON HYDROCHLORIDE [Concomitant]
     Indication: PROPHYLAXIS OF NAUSEA AND VOMITING
     Route: 065

REACTIONS (1)
  - FLANK PAIN [None]
